FAERS Safety Report 5729915-9 (Version None)
Quarter: 2008Q2

REPORT INFORMATION
  Report Type: 
  Country: None (occurrence: None)
  Receive Date: 20080502
  Receipt Date: 20080423
  Transmission Date: 20081010
  Serious: Yes (Other)
  Sender: FDA-Public Use
  Company Number: 2008-01946

PATIENT
  Age: 56 Year
  Sex: Female
  Weight: 76.2 kg

DRUGS (4)
  1. PREDNISONE [Suspect]
     Indication: PLATELET COUNT ABNORMAL
     Dosage: 2 TABLET, TID, ORAL; 3 TABLET, TID, ORAL; 2 TABLET, TID, ORAL
     Route: 048
     Dates: start: 20070801, end: 20070801
  2. PREDNISONE [Suspect]
     Indication: PLATELET COUNT ABNORMAL
     Dosage: 2 TABLET, TID, ORAL; 3 TABLET, TID, ORAL; 2 TABLET, TID, ORAL
     Route: 048
     Dates: start: 20070812, end: 20070801
  3. PREDNISONE [Suspect]
     Indication: PLATELET COUNT ABNORMAL
     Dosage: 2 TABLET, TID, ORAL; 3 TABLET, TID, ORAL; 2 TABLET, TID, ORAL
     Route: 048
     Dates: start: 20070729, end: 20070811
  4. LISINOPRIL [Concomitant]

REACTIONS (29)
  - ABDOMINAL DISTENSION [None]
  - ABNORMAL BEHAVIOUR [None]
  - ABNORMAL DREAMS [None]
  - ALANINE AMINOTRANSFERASE INCREASED [None]
  - ASPARTATE AMINOTRANSFERASE INCREASED [None]
  - BLOOD ALKALINE PHOSPHATASE INCREASED [None]
  - BLOOD THYROID STIMULATING HORMONE DECREASED [None]
  - CHOKING SENSATION [None]
  - CONFUSIONAL STATE [None]
  - CONVULSION [None]
  - COUGH [None]
  - DYSPNOEA [None]
  - FAECAL INCONTINENCE [None]
  - HALLUCINATION, VISUAL [None]
  - INSOMNIA [None]
  - JAW DISORDER [None]
  - LIP SWELLING [None]
  - MUSCLE CONTRACTIONS INVOLUNTARY [None]
  - MUSCLE DISORDER [None]
  - MUSCLE SPASMS [None]
  - MUSCULOSKELETAL STIFFNESS [None]
  - OEDEMA PERIPHERAL [None]
  - SWELLING FACE [None]
  - SWOLLEN TONGUE [None]
  - TINNITUS [None]
  - TONGUE BITING [None]
  - URINARY INCONTINENCE [None]
  - VISION BLURRED [None]
  - WEIGHT INCREASED [None]
